FAERS Safety Report 19509695 (Version 1)
Quarter: 2021Q3

REPORT INFORMATION
  Report Type: Report from Study
  Country: DE (occurrence: DE)
  Receive Date: 20210708
  Receipt Date: 20210708
  Transmission Date: 20211014
  Serious: Yes (Life-Threatening)
  Sender: FDA-Public Use
  Company Number: DE-PFIZER INC-2021817455

PATIENT
  Age: 53 Year

DRUGS (5)
  1. CYCLOPHOSPHAMID [Suspect]
     Active Substance: CYCLOPHOSPHAMIDE
     Dosage: UNK
  2. HERCEPTIN [Suspect]
     Active Substance: TRASTUZUMAB
     Dosage: UNK
  3. LONQUEX [Suspect]
     Active Substance: LIPEGFILGRASTIM
     Dosage: UNK
  4. RATIOGRASTIM [Suspect]
     Active Substance: FILGRASTIM
     Dosage: UNK
  5. EPIRUBICIN HCL [Suspect]
     Active Substance: EPIRUBICIN HYDROCHLORIDE
     Dosage: UNK

REACTIONS (10)
  - Pain [Recovered/Resolved]
  - Diarrhoea [Unknown]
  - White blood cell count decreased [Recovered/Resolved]
  - Neutropenia [Recovered/Resolved]
  - Stomatitis [Unknown]
  - Constipation [Recovered/Resolved]
  - Nausea [Unknown]
  - Ligament rupture [Unknown]
  - Fatigue [Unknown]
  - Vomiting [Unknown]
